FAERS Safety Report 9200370 (Version 1)
Quarter: 2013Q1

REPORT INFORMATION
  Report Type: Report from Study
  Country: BR (occurrence: BR)
  Receive Date: 20130329
  Receipt Date: 20130329
  Transmission Date: 20140127
  Serious: Yes (Other)
  Sender: FDA-Public Use
  Company Number: BR-ABBOTT-13P-020-1067511-00

PATIENT
  Sex: Female
  Weight: 67 kg

DRUGS (3)
  1. HUMIRA [Suspect]
     Indication: RHEUMATOID ARTHRITIS
     Route: 058
     Dates: start: 201205, end: 201206
  2. PREDNISONE [Concomitant]
     Indication: SYSTEMIC LUPUS ERYTHEMATOSUS
     Route: 048
     Dates: start: 1994
  3. AMITRIPTYLINE [Concomitant]
     Indication: DEPRESSION
     Dates: start: 2000

REACTIONS (4)
  - Pruritus generalised [Unknown]
  - Dyspnoea [Unknown]
  - Pharyngeal disorder [Unknown]
  - Hypersensitivity [Unknown]
